FAERS Safety Report 11386055 (Version 2)
Quarter: 2015Q3

REPORT INFORMATION
  Report Type: Report from Study
  Country: DE (occurrence: DE)
  Receive Date: 20150817
  Receipt Date: 20150928
  Transmission Date: 20151125
  Serious: Yes (Other)
  Sender: FDA-Public Use
  Company Number: PHHY2015DE097599

PATIENT
  Age: 51 Year
  Sex: Female
  Weight: 79 kg

DRUGS (3)
  1. EXTAVIA [Suspect]
     Active Substance: INTERFERON BETA-1B
     Indication: MULTIPLE SCLEROSIS
     Dosage: 250 ?G/ML ONCE EVERY OTHER DAY
     Route: 058
     Dates: start: 20060101
  2. EXTAVIA [Suspect]
     Active Substance: INTERFERON BETA-1B
     Indication: ENCEPHALOMYELITIS
  3. L-THYROXIN [Concomitant]
     Active Substance: LEVOTHYROXINE SODIUM
     Indication: HYPOTHYROIDISM
     Dosage: 50 UNK, UNK (3 YEARS PRIOR TO 21 SEP 2015)
     Route: 048

REACTIONS (2)
  - Clostridial infection [Recovering/Resolving]
  - Sinusitis [Not Recovered/Not Resolved]

NARRATIVE: CASE EVENT DATE: 201503
